FAERS Safety Report 4479027-X (Version None)
Quarter: 2004Q4

REPORT INFORMATION
  Report Type: 
  Country: None (occurrence: None)
  Receive Date: 20041019
  Receipt Date: 20041013
  Transmission Date: 20050328
  Serious: Yes (Other)
  Sender: FDA-Public Use
  Company Number: US-MERCK-0410USA02118

PATIENT
  Age: 66 Year
  Sex: Male

DRUGS (7)
  1. VIOXX [Suspect]
     Route: 048
     Dates: start: 19990101, end: 20040930
  2. CLOVIX [Concomitant]
     Route: 065
  3. FOLIC ACID [Concomitant]
     Route: 065
  4. VITAMIN B COMPLEX [Concomitant]
     Route: 065
  5. PREVACID [Concomitant]
     Route: 065
  6. NORVASC [Concomitant]
     Route: 065
  7. ALLEGRA [Concomitant]
     Route: 065

REACTIONS (2)
  - CEREBROVASCULAR ACCIDENT [None]
  - MYOCARDIAL INFARCTION [None]
